FAERS Safety Report 9619932 (Version 2)
Quarter: 2013Q4

REPORT INFORMATION
  Report Type: Spontaneous
  Country: US (occurrence: US)
  Receive Date: 20131014
  Receipt Date: 20131119
  Transmission Date: 20140711
  Serious: No
  Sender: FDA-Public Use
  Company Number: US-009507513-1309USA012740

PATIENT
  Age: 74 Year
  Sex: Female
  Weight: 69.84 kg

DRUGS (3)
  1. ASMANEX TWISTHALER [Suspect]
     Indication: ASTHMA
     Dosage: ONE PUFF TWICE DAILY
     Route: 055
  2. ASMANEX TWISTHALER [Suspect]
     Dosage: 14 DOSES
     Route: 055
     Dates: start: 20130918
  3. SINGULAIR [Concomitant]

REACTIONS (4)
  - Dyspnoea [Recovering/Resolving]
  - Drug dose omission [Unknown]
  - Product quality issue [Unknown]
  - Overdose [Unknown]
